FAERS Safety Report 7293560-7 (Version None)
Quarter: 2011Q1

REPORT INFORMATION
  Report Type: 
  Country: None (occurrence: None)
  Receive Date: 20110215
  Receipt Date: 20110203
  Transmission Date: 20110831
  Serious: Yes (Other)
  Sender: FDA-Public Use
  Company Number: ES-SANOFI-AVENTIS-2011SA007255

PATIENT
  Sex: Female
  Weight: 60 kg

DRUGS (10)
  1. AERO RED [Concomitant]
     Route: 048
     Dates: start: 20101130
  2. MULTAQ [Suspect]
     Indication: PAROXYSMAL ARRHYTHMIA
     Route: 048
     Dates: start: 20101118, end: 20101224
  3. RANITIDINA [Concomitant]
     Route: 048
     Dates: start: 20101118, end: 20101221
  4. LORAZEPAM [Concomitant]
     Route: 048
  5. CIPROFLOXACIN [Concomitant]
     Route: 048
     Dates: start: 20101201, end: 20101221
  6. ATORVASTATIN [Concomitant]
     Indication: HYPERCHOLESTEROLAEMIA
     Route: 048
     Dates: start: 20101119
  7. VENOSMIL [Concomitant]
     Route: 048
  8. EFFERALGAN [Concomitant]
     Route: 048
  9. SINTROM [Concomitant]
     Indication: PAROXYSMAL ARRHYTHMIA
     Route: 048
     Dates: start: 20101118
  10. SOMAZINA [Concomitant]
     Route: 048

REACTIONS (2)
  - MIXED LIVER INJURY [None]
  - LIVER INJURY [None]
